FAERS Safety Report 9986998 (Version 2)
Quarter: 2014Q1

REPORT INFORMATION
  Report Type: Spontaneous
  Country: US (occurrence: US)
  Receive Date: 20140307
  Receipt Date: 20140307
  Transmission Date: 20141002
  Serious: No
  Sender: FDA-Public Use
  Company Number: US-AMGEN-USASP2013014663

PATIENT
  Age: 38 Year
  Sex: Female
  Weight: 52.15 kg

DRUGS (5)
  1. ENBREL [Suspect]
     Indication: PSORIASIS
     Dosage: 50 MG, QWK
     Route: 065
     Dates: start: 20090101
  2. ENBREL [Suspect]
     Indication: PSORIATIC ARTHROPATHY
  3. VITAMIN B [Concomitant]
     Dosage: UNK, QD
     Route: 065
     Dates: start: 20000101
  4. CALCIUM [Concomitant]
     Dosage: UNK, QD
     Dates: start: 20000101
  5. FISH OIL [Concomitant]
     Dosage: UNK, QD
     Dates: start: 20130201

REACTIONS (1)
  - Arthritis [Unknown]
